FAERS Safety Report 9098915 (Version 2)
Quarter: 2013Q1

REPORT INFORMATION
  Report Type: Spontaneous
  Country: IT (occurrence: IT)
  Receive Date: 20130214
  Receipt Date: 20130328
  Transmission Date: 20140127
  Serious: Yes (Hospitalization)
  Sender: FDA-Public Use
  Company Number: IT-PFIZER INC-2013055768

PATIENT
  Age: 40 Year
  Sex: Female

DRUGS (6)
  1. XANAX [Suspect]
     Dosage: 1 MG, DAILY
     Route: 048
  2. XANAX [Suspect]
     Dosage: 20 MG, SINGLE
     Route: 048
     Dates: start: 20130205, end: 20130205
  3. SEREUPIN [Suspect]
     Indication: DEPRESSION
     Dosage: 20 MG, DAILY
     Route: 048
     Dates: start: 201210
  4. SEREUPIN [Suspect]
     Dosage: 20MG (14 TABLETS), SINGLE
     Route: 048
     Dates: start: 20130205, end: 20130205
  5. RIZEN [Suspect]
     Dosage: 10 MG, DAILY
     Route: 048
  6. RIZEN [Suspect]
     Dosage: 10 MG (10 TABLETS), SINGLE
     Route: 048
     Dates: start: 20130205, end: 20130205

REACTIONS (5)
  - Intentional overdose [Recovered/Resolved]
  - Intentional self-injury [Recovered/Resolved]
  - Bradykinesia [Recovered/Resolved]
  - Bradyphrenia [Recovered/Resolved]
  - Hypotension [Recovered/Resolved]
